FAERS Safety Report 7717810-5 (Version None)
Quarter: 2011Q3

REPORT INFORMATION
  Report Type: 
  Country: None (occurrence: None)
  Receive Date: 20110824
  Receipt Date: 20110812
  Transmission Date: 20111222
  Serious: Yes (Other)
  Sender: FDA-Public Use
  Company Number: AUR-APL-2011-04707

PATIENT
  Age: 36 Year
  Sex: Male

DRUGS (7)
  1. LAMOTRIGINE [Suspect]
     Indication: HALLUCINATION, AUDITORY
     Dosage: (200 MG,AT BEDTIME)
  2. HALOPERIDOL [Suspect]
     Indication: HALLUCINATION, AUDITORY
     Dosage: (80 MG,1 D)
  3. FLUPHENAZINE [Suspect]
     Indication: HALLUCINATION, AUDITORY
     Dosage: (80 MG,1 D)
  4. RISPERIDONE [Suspect]
     Indication: HALLUCINATION, AUDITORY
     Dosage: (6 MG,1 D)
  5. ZIPRASIDONE HCL [Suspect]
     Indication: HALLUCINATION, AUDITORY
     Dosage: (160 MG,WITH DINNER) ; (40 MG,1 D)
  6. OLANZAPINE [Suspect]
     Indication: HALLUCINATION, AUDITORY
     Dosage: (40 MG,AT BEDTIME)
  7. THIOTHIXENE [Suspect]
     Indication: HALLUCINATION, AUDITORY
     Dosage: (80 MG,1 D) ; (40 MG,1 D) ; (40 MG,WITH DINNER)

REACTIONS (8)
  - HYPERGLYCAEMIA [None]
  - HALLUCINATION, AUDITORY [None]
  - FEAR [None]
  - PSYCHOTIC DISORDER [None]
  - NO THERAPEUTIC RESPONSE [None]
  - REFUSAL OF TREATMENT BY PATIENT [None]
  - SELF-INJURIOUS IDEATION [None]
  - HYPERCHOLESTEROLAEMIA [None]
